FAERS Safety Report 6017159-5 (Version None)
Quarter: 2008Q4

REPORT INFORMATION
  Report Type: 
  Country: None (occurrence: None)
  Receive Date: 20081219
  Receipt Date: 20081215
  Transmission Date: 20090506
  Serious: Yes (Death)
  Sender: FDA-Public Use
  Company Number: US025175

PATIENT
  Age: 53 Year
  Sex: Male

DRUGS (1)
  1. TREANDA [Suspect]
     Indication: LYMPHOMA
     Dosage: 200 MG QD INTRAMUSCULAR
     Route: 030
     Dates: start: 20081101, end: 20081101

REACTIONS (1)
  - DEATH [None]
